FAERS Safety Report 5756366-3 (Version None)
Quarter: 2008Q2

REPORT INFORMATION
  Report Type: 
  Country: None (occurrence: None)
  Receive Date: 20080529
  Receipt Date: 20080516
  Transmission Date: 20081010
  Serious: Yes (Hospitalization, Other)
  Sender: FDA-Public Use
  Company Number: S08-USA-00201-01

PATIENT
  Age: 22 Year
  Sex: Male

DRUGS (3)
  1. LEXAPRO [Suspect]
     Indication: ANXIETY
     Dosage: 10 MG QD PO
     Route: 048
     Dates: start: 20071001
  2. LEXAPRO [Suspect]
     Indication: DEPRESSION
     Dosage: 10 MG QD PO
     Route: 048
     Dates: start: 20071001
  3. AMOXICILLIN [Concomitant]

REACTIONS (19)
  - AGRANULOCYTOSIS [None]
  - COUGH [None]
  - FULL BLOOD COUNT ABNORMAL [None]
  - HEART RATE INCREASED [None]
  - LEUKOCYTOSIS [None]
  - LEUKOPENIA [None]
  - LYMPHADENOPATHY [None]
  - NEUTROPENIA [None]
  - PHARYNGITIS [None]
  - PHARYNGOLARYNGEAL PAIN [None]
  - PLATELET DISORDER [None]
  - POIKILOCYTOSIS [None]
  - PYREXIA [None]
  - RASH [None]
  - RASH MACULO-PAPULAR [None]
  - RED BLOOD CELL SCHISTOCYTES PRESENT [None]
  - SKIN INFECTION [None]
  - ULCER [None]
  - WHITE BLOOD CELL COUNT DECREASED [None]
